FAERS Safety Report 9579962 (Version 3)
Quarter: 2013Q4

REPORT INFORMATION
  Report Type: Spontaneous
  Country: US (occurrence: US)
  Receive Date: 20131002
  Receipt Date: 20131024
  Transmission Date: 20140711
  Serious: Yes (Other)
  Sender: FDA-Public Use
  Company Number: US-BAYER-2013-114511

PATIENT
  Age: 51 Year
  Sex: Female

DRUGS (2)
  1. ADALAT CC [Suspect]
     Indication: HYPERTENSION
     Dosage: DAILY DOSE 90 MG
     Route: 060
  2. ADALAT CC [Suspect]
     Indication: HYPERTENSION
     Dosage: UNK
     Dates: start: 20130910

REACTIONS (1)
  - Hypertension [Not Recovered/Not Resolved]
